FAERS Safety Report 10705759 (Version 2)
Quarter: 2015Q1

REPORT INFORMATION
  Report Type: Spontaneous
  Country: US (occurrence: US)
  Receive Date: 20150112
  Receipt Date: 20150206
  Transmission Date: 20150721
  Serious: Yes (Hospitalization, Other)
  Sender: FDA-Public Use
  Company Number: US-TEVA-533312USA

PATIENT
  Age: 30 Year
  Sex: Female

DRUGS (1)
  1. COPAXONE [Suspect]
     Active Substance: GLATIRAMER ACETATE
     Indication: MULTIPLE SCLEROSIS
     Dates: start: 20140707

REACTIONS (3)
  - Multiple sclerosis relapse [Recovering/Resolving]
  - Muscular weakness [Unknown]
  - Sensory disturbance [Unknown]

NARRATIVE: CASE EVENT DATE: 201412
